FAERS Safety Report 14837017 (Version 1)
Quarter: 2018Q2

REPORT INFORMATION
  Report Type: Spontaneous
  Country: FR (occurrence: FR)
  Receive Date: 20180502
  Receipt Date: 20180502
  Transmission Date: 20180711
  Serious: Yes (Other)
  Sender: FDA-Public Use
  Company Number: FR-MERCK KGAA-2046990

PATIENT
  Age: 51 Year
  Sex: Female

DRUGS (1)
  1. NOVOTHYROX [Suspect]
     Active Substance: LEVOTHYROXINE SODIUM
     Indication: HYPOTHYROIDISM
     Dates: start: 2017

REACTIONS (15)
  - Negative thoughts [None]
  - Malaise [Not Recovered/Not Resolved]
  - Dysstasia [None]
  - Vomiting [None]
  - Violence-related symptom [None]
  - Loss of personal independence in daily activities [None]
  - Fatigue [None]
  - Libido disorder [None]
  - Headache [None]
  - Muscle spasms [None]
  - Alopecia [None]
  - Sleep disorder [None]
  - Insomnia [None]
  - Diarrhoea [None]
  - Dizziness [None]

NARRATIVE: CASE EVENT DATE: 201705
